FAERS Safety Report 13674725 (Version 1)
Quarter: 2017Q2

REPORT INFORMATION
  Report Type: Spontaneous
  Country: US (occurrence: US)
  Receive Date: 20170621
  Receipt Date: 20170621
  Transmission Date: 20170830
  Serious: Yes (Other)
  Sender: FDA-Public Use
  Company Number: US-PFIZER INC-2017269360

PATIENT
  Sex: Male

DRUGS (1)
  1. XELJANZ XR [Suspect]
     Active Substance: TOFACITINIB CITRATE
     Dosage: 11 MG, DAILY
     Dates: start: 20160928

REACTIONS (6)
  - Rheumatoid nodule [Unknown]
  - Peripheral swelling [Recovered/Resolved]
  - Joint crepitation [Unknown]
  - Joint swelling [Unknown]
  - Prostate cancer [Unknown]
  - Arthralgia [Unknown]
